FAERS Safety Report 26205566 (Version 1)
Quarter: 2025Q4

REPORT INFORMATION
  Report Type: Report from Study
  Country: GB (occurrence: GB)
  Receive Date: 20251228
  Receipt Date: 20251228
  Transmission Date: 20260117
  Serious: Yes (Other)
  Sender: ABBVIE
  Company Number: GB-ABBVIE-6607320

PATIENT
  Sex: Male

DRUGS (1)
  1. RINVOQ [Suspect]
     Active Substance: UPADACITINIB
     Indication: Psoriatic arthropathy
     Dosage: 15MG ?28 TABLET 4 X 7 TABLETS
     Route: 048

REACTIONS (2)
  - Hernia [Not Recovered/Not Resolved]
  - Intentional product misuse [Not Recovered/Not Resolved]
